FAERS Safety Report 8309806-X (Version None)
Quarter: 2012Q2

REPORT INFORMATION
  Report Type: 
  Country: None (occurrence: None)
  Receive Date: 20120425
  Receipt Date: 20120417
  Transmission Date: 20120825
  Serious: Yes (Hospitalization)
  Sender: FDA-Public Use
  Company Number: PHEH2012US004246

PATIENT
  Sex: Female

DRUGS (1)
  1. GLEEVEC [Suspect]
     Indication: MALIGNANT SOFT TISSUE NEOPLASM
     Dosage: 100 MG, DAILY
     Route: 048
     Dates: start: 20111130

REACTIONS (3)
  - POSTOPERATIVE ADHESION [None]
  - FATIGUE [None]
  - OBSTRUCTION GASTRIC [None]
